FAERS Safety Report 12545292 (Version 2)
Quarter: 2016Q3

REPORT INFORMATION
  Report Type: Spontaneous
  Country: FR (occurrence: FR)
  Receive Date: 20160711
  Receipt Date: 20160728
  Transmission Date: 20161109
  Serious: Yes (Life-Threatening, Hospitalization)
  Sender: FDA-Public Use
  Company Number: FR-PFIZER INC-2016335426

PATIENT
  Age: 84 Year
  Sex: Male

DRUGS (9)
  1. TENORMIN [Suspect]
     Active Substance: ATENOLOL
     Dosage: 50 MG, 1X/DAY
     Route: 048
  2. TENORMIN [Suspect]
     Active Substance: ATENOLOL
     Indication: HYPERTENSION
     Dosage: 100 MG, 1X/DAY
     Route: 048
  3. NATISPRAY [Suspect]
     Active Substance: NITROGLYCERIN
     Dosage: 1 DF, 1X/DAY
     Route: 060
  4. SIMVASTATIN. [Concomitant]
     Active Substance: SIMVASTATIN
     Dosage: UNK
  5. AMLOR [Suspect]
     Active Substance: AMLODIPINE BESYLATE
     Indication: HYPERTENSION
     Dosage: 5.0MG UNKNOWN
     Route: 048
     Dates: end: 20160605
  6. METFORMIN HCL [Suspect]
     Active Substance: METFORMIN HYDROCHLORIDE
     Indication: TYPE 2 DIABETES MELLITUS
     Dosage: 1 DF, 3X/DAY
     Route: 048
     Dates: end: 20160605
  7. KARDEGIC [Concomitant]
     Active Substance: ASPIRIN LYSINE
     Dosage: 75.0MG
  8. INEXIUM /01479302/ [Concomitant]
     Active Substance: ESOMEPRAZOLE MAGNESIUM
     Dosage: UNK
  9. BIPRETERAX /06377001/ [Suspect]
     Active Substance: INDAPAMIDE\PERINDOPRIL
     Dosage: 1 DF, 1X/DAY
     Route: 048
     Dates: end: 20160605

REACTIONS (10)
  - Dehydration [Recovered/Resolved]
  - Bundle branch block [Recovered/Resolved]
  - Bundle branch block left [Recovered/Resolved]
  - Diarrhoea [Unknown]
  - Acute kidney injury [Not Recovered/Not Resolved]
  - Anal incontinence [Unknown]
  - Malaise [Recovered/Resolved]
  - Hypotension [Recovered/Resolved]
  - Urinary incontinence [Unknown]
  - Lactic acidosis [Recovered/Resolved]

NARRATIVE: CASE EVENT DATE: 20160528
